FAERS Safety Report 9363135 (Version 4)
Quarter: 2015Q2

REPORT INFORMATION
  Report Type: Report from Study
  Country: US (occurrence: US)
  Receive Date: 20130624
  Receipt Date: 20150507
  Transmission Date: 20150821
  Serious: Yes (Hospitalization, Other)
  Sender: FDA-Public Use
  Company Number: US-BIOGENIDEC-2013BI054911

PATIENT
  Age: 49 Year
  Sex: Female

DRUGS (35)
  1. AVONEX [Suspect]
     Active Substance: INTERFERON BETA-1A
     Indication: MULTIPLE SCLEROSIS
     Route: 030
     Dates: start: 19990901
  2. AMPYRA [Concomitant]
     Active Substance: DALFAMPRIDINE
     Indication: GAIT DISTURBANCE
     Route: 048
     Dates: start: 201305, end: 201305
  3. AMANTADINE [Concomitant]
     Active Substance: AMANTADINE
     Indication: LETHARGY
  4. ACTIGALL [Concomitant]
     Active Substance: URSODIOL
  5. CYMBALTA [Concomitant]
     Active Substance: DULOXETINE HYDROCHLORIDE
     Dates: start: 2009
  6. LACTULOSE. [Concomitant]
     Active Substance: LACTULOSE
     Dates: start: 2012
  7. AMPYRA [Concomitant]
     Active Substance: DALFAMPRIDINE
     Indication: MULTIPLE SCLEROSIS
     Route: 048
     Dates: start: 20130517, end: 201305
  8. AMPYRA [Concomitant]
     Active Substance: DALFAMPRIDINE
     Indication: GAIT DISTURBANCE
     Route: 048
     Dates: start: 2013, end: 20130722
  9. HYDROCHLOROTHIAZIDE. [Concomitant]
     Active Substance: HYDROCHLOROTHIAZIDE
     Dates: start: 1998
  10. TRAMADOL [Concomitant]
     Active Substance: TRAMADOL
     Dates: start: 1988
  11. CLONAZEPAM. [Concomitant]
     Active Substance: CLONAZEPAM
  12. AMPYRA [Concomitant]
     Active Substance: DALFAMPRIDINE
     Indication: GAIT DISTURBANCE
     Route: 048
     Dates: start: 20130517, end: 201305
  13. EFFEXOR [Concomitant]
     Active Substance: VENLAFAXINE HYDROCHLORIDE
  14. VITAMIN D [Concomitant]
     Active Substance: CHOLECALCIFEROL
  15. AVONEX [Suspect]
     Active Substance: INTERFERON BETA-1A
     Indication: MULTIPLE SCLEROSIS
     Route: 030
     Dates: end: 20130705
  16. AVONEX [Suspect]
     Active Substance: INTERFERON BETA-1A
     Indication: MULTIPLE SCLEROSIS
     Route: 030
     Dates: start: 20130907
  17. TYSABRI [Concomitant]
     Active Substance: NATALIZUMAB
     Indication: MULTIPLE SCLEROSIS
  18. AMPYRA [Concomitant]
     Active Substance: DALFAMPRIDINE
     Indication: GAIT DISTURBANCE
     Route: 048
     Dates: start: 2013, end: 20130621
  19. ZANTAC [Concomitant]
     Active Substance: RANITIDINE HYDROCHLORIDE
  20. FISH OIL [Concomitant]
     Active Substance: FISH OIL
  21. BEANO [Concomitant]
     Active Substance: ASPERGILLUS NIGER .ALPHA.-GALACTOSIDASE
  22. BIOTIN [Concomitant]
     Active Substance: BIOTIN
  23. AMPYRA [Concomitant]
     Active Substance: DALFAMPRIDINE
     Indication: MULTIPLE SCLEROSIS
     Route: 048
     Dates: start: 2013, end: 20130621
  24. FLOMAX [Concomitant]
     Active Substance: TAMSULOSIN HYDROCHLORIDE
     Dates: start: 2008
  25. BACLOFEN. [Concomitant]
     Active Substance: BACLOFEN
     Dates: start: 2008
  26. AMPYRA [Concomitant]
     Active Substance: DALFAMPRIDINE
     Indication: MULTIPLE SCLEROSIS
     Route: 048
     Dates: start: 201305, end: 201305
  27. AMPYRA [Concomitant]
     Active Substance: DALFAMPRIDINE
     Indication: MULTIPLE SCLEROSIS
     Route: 048
     Dates: start: 2013, end: 20130722
  28. INDERAL [Concomitant]
     Active Substance: PROPRANOLOL HYDROCHLORIDE
     Dates: start: 1988
  29. AMPYRA [Concomitant]
     Active Substance: DALFAMPRIDINE
     Indication: MULTIPLE SCLEROSIS
     Route: 048
     Dates: start: 20130622, end: 2013
  30. ASPIRIN. [Concomitant]
     Active Substance: ASPIRIN
     Dates: start: 1988
  31. POTASSIUM [Concomitant]
     Active Substance: POTASSIUM
     Dates: start: 1998
  32. AMPYRA [Concomitant]
     Active Substance: DALFAMPRIDINE
     Indication: GAIT DISTURBANCE
     Route: 048
     Dates: start: 20130622, end: 2013
  33. OXYBUTYNIN [Concomitant]
     Active Substance: OXYBUTYNIN
     Dates: start: 2008
  34. FLEXERIL [Concomitant]
     Active Substance: CYCLOBENZAPRINE HYDROCHLORIDE
     Dates: start: 2008
  35. COLACE [Concomitant]
     Active Substance: DOCUSATE SODIUM

REACTIONS (42)
  - Tremor [Recovered/Resolved]
  - Malaise [Unknown]
  - Pain [Recovered/Resolved]
  - Arthralgia [Recovered/Resolved]
  - Dysphagia [Recovered/Resolved]
  - Peripheral nerve injury [Unknown]
  - Cognitive disorder [Recovered/Resolved]
  - Suicidal ideation [Recovered/Resolved]
  - Gait disturbance [Recovered/Resolved]
  - Blood pressure increased [Recovered/Resolved]
  - Nerve compression [Unknown]
  - Vitiligo [Not Recovered/Not Resolved]
  - Oedema peripheral [Recovered/Resolved]
  - Chills [Recovered/Resolved]
  - Gallbladder disorder [Recovered/Resolved]
  - Petechiae [Recovered/Resolved]
  - Musculoskeletal disorder [Recovered/Resolved]
  - Pain in extremity [Recovered/Resolved]
  - Drug hypersensitivity [Recovered/Resolved]
  - Osteonecrosis [Not Recovered/Not Resolved]
  - Amnesia [Unknown]
  - Gastrooesophageal reflux disease [Not Recovered/Not Resolved]
  - Photosensitivity reaction [Unknown]
  - Nerve injury [Unknown]
  - Muscular weakness [Recovered/Resolved]
  - Joint stiffness [Recovered/Resolved]
  - Multiple sclerosis relapse [Recovered/Resolved]
  - Hepatic enzyme increased [Recovered/Resolved]
  - Fractured sacrum [Unknown]
  - Cystitis [Recovered/Resolved]
  - Fall [Recovered/Resolved]
  - Burning sensation [Recovered/Resolved]
  - Autoimmune hepatitis [Not Recovered/Not Resolved]
  - Depression [Not Recovered/Not Resolved]
  - Cyst [Unknown]
  - Dermatitis allergic [Recovered/Resolved]
  - Influenza [Unknown]
  - Injection site pain [Unknown]
  - Biliary cirrhosis primary [Unknown]
  - Lethargy [Not Recovered/Not Resolved]
  - Cholelithiasis [Recovered/Resolved]
  - Laryngospasm [Recovered/Resolved]

NARRATIVE: CASE EVENT DATE: 2001
